FAERS Safety Report 5968287-1 (Version None)
Quarter: 2008Q4

REPORT INFORMATION
  Report Type: 
  Country: None (occurrence: None)
  Receive Date: 20081126
  Receipt Date: 20081121
  Transmission Date: 20090506
  Serious: Yes (Other)
  Sender: FDA-Public Use
  Company Number: JP-BRISTOL-MYERS SQUIBB COMPANY-14369730

PATIENT
  Age: 63 Year
  Sex: Female

DRUGS (2)
  1. TAXOL [Suspect]
     Indication: BREAST CANCER
     Route: 041
     Dates: start: 20080912
  2. DECADRON [Suspect]
     Indication: PREMEDICATION
     Route: 041

REACTIONS (1)
  - MACULAR OEDEMA [None]
